FAERS Safety Report 9910403 (Version 2)
Quarter: 2014Q1

REPORT INFORMATION
  Report Type: Spontaneous
  Country: US (occurrence: US)
  Receive Date: 20140219
  Receipt Date: 20140319
  Transmission Date: 20141002
  Serious: No
  Sender: FDA-Public Use
  Company Number: US-PFIZER INC-2014047364

PATIENT
  Sex: Male

DRUGS (3)
  1. GEODON [Suspect]
     Indication: BIPOLAR I DISORDER
     Dosage: 20 MG, UNK
  2. GEODON [Suspect]
     Dosage: 30MG AT NIGHT AND 10MG DURING THE DAY
  3. EFFEXOR [Suspect]
     Indication: BIPOLAR I DISORDER
     Dosage: UNK

REACTIONS (3)
  - Wrong technique in drug usage process [Unknown]
  - Feeling abnormal [Unknown]
  - Off label use [Unknown]
